FAERS Safety Report 12948326 (Version 2)
Quarter: 2016Q4

REPORT INFORMATION
  Report Type: Spontaneous
  Country: JP (occurrence: JP)
  Receive Date: 20161116
  Receipt Date: 20161214
  Transmission Date: 20170207
  Serious: Yes (Other)
  Sender: FDA-Public Use
  Company Number: JP-EMD SERONO-8117780

PATIENT
  Age: 37 Year
  Sex: Female

DRUGS (2)
  1. HMG                                /01277601/ [Concomitant]
     Indication: HYPOPITUITARISM
     Dosage: 10DAYS
     Route: 065
     Dates: start: 201411
  2. SAIZEN [Suspect]
     Active Substance: SOMATROPIN
     Indication: HYPOPITUITARISM
     Dosage: 10DAYS
     Route: 065
     Dates: start: 201411

REACTIONS (2)
  - Abortion [Unknown]
  - Off label use [Unknown]

NARRATIVE: CASE EVENT DATE: 201412
